FAERS Safety Report 21326565 (Version 3)
Quarter: 2022Q4

REPORT INFORMATION
  Report Type: Report from Study
  Country: US (occurrence: US)
  Receive Date: 20220913
  Receipt Date: 20221003
  Transmission Date: 20230113
  Serious: No
  Sender: FDA-Public Use
  Company Number: US-SA-SAC20220907001084

PATIENT
  Age: 60 Year
  Sex: Female

DRUGS (12)
  1. TERIFLUNOMIDE [Suspect]
     Active Substance: TERIFLUNOMIDE
     Indication: Multiple sclerosis
     Dosage: UNK UNK, QD
     Route: 048
     Dates: start: 20220701, end: 20220823
  2. CLONAZEPAM [Concomitant]
     Active Substance: CLONAZEPAM
  3. AIMOVIG [Concomitant]
     Active Substance: ERENUMAB-AOOE
  4. RIZATRIPTAN [Concomitant]
     Active Substance: RIZATRIPTAN
  5. MECLIZINE [Concomitant]
     Active Substance: MECLIZINE HYDROCHLORIDE
  6. SINGULAIR [Concomitant]
     Active Substance: MONTELUKAST SODIUM
  7. MONTELUKAST [Concomitant]
     Active Substance: MONTELUKAST SODIUM
  8. ALBUTEROL [Concomitant]
     Active Substance: ALBUTEROL
  9. AZELASTINE [Concomitant]
     Active Substance: AZELASTINE
  10. FLUTICASONE [Concomitant]
     Active Substance: FLUTICASONE
  11. LEVOTHYROXINE [Concomitant]
     Active Substance: LEVOTHYROXINE
  12. ROSUVASTATIN [Concomitant]
     Active Substance: ROSUVASTATIN

REACTIONS (1)
  - Rash [Not Recovered/Not Resolved]

NARRATIVE: CASE EVENT DATE: 20220715
